FAERS Safety Report 9490972 (Version 1)
Quarter: 2013Q3

REPORT INFORMATION
  Report Type: Spontaneous
  Country: US (occurrence: US)
  Receive Date: 20130830
  Receipt Date: 20130830
  Transmission Date: 20140515
  Serious: Yes (Other)
  Sender: FDA-Public Use
  Company Number: US-PFIZER INC-2013248553

PATIENT
  Age: 56 Year
  Sex: Male
  Weight: 102 kg

DRUGS (6)
  1. LYRICA [Suspect]
     Indication: PROCEDURAL PAIN
     Dosage: 50 MG, AS NEEDED
  2. LYRICA [Suspect]
     Indication: NECK PAIN
     Dosage: 25 MG, 3X/DAY
     Dates: start: 201308
  3. LYRICA [Suspect]
     Indication: NEURALGIA
  4. OXYCODONE HYDROCHLORIDE [Suspect]
     Indication: PROCEDURAL PAIN
     Dosage: UNK
  5. OXYCODONE HYDROCHLORIDE [Suspect]
     Indication: NECK PAIN
  6. ADVIL [Concomitant]
     Dosage: UNK, AS NEEDED

REACTIONS (4)
  - Off label use [Unknown]
  - Blood pressure decreased [Unknown]
  - Dizziness [Unknown]
  - Circumstance or information capable of leading to medication error [Unknown]
